FAERS Safety Report 20221995 (Version 1)
Quarter: 2021Q4

REPORT INFORMATION
  Report Type: Other
  Country: US (occurrence: None)
  Receive Date: 20211223
  Receipt Date: 20211223
  Transmission Date: 20220303
  Serious: No
  Sender: FDA-Public Use
  Company Number: US-ROCHE-2982680

PATIENT
  Age: 57 Year
  Sex: Female
  Weight: 93.978 kg

DRUGS (3)
  1. OCREVUS [Suspect]
     Active Substance: OCRELIZUMAB
     Indication: Relapsing-remitting multiple sclerosis
     Dosage: DATE OF MOST RECENT INFUSION : 2021-08-11
     Route: 042
     Dates: start: 201908
  2. LISINOPRIL [Concomitant]
     Active Substance: LISINOPRIL
     Dosage: YES
     Route: 048
     Dates: start: 2011
  3. CABERGOLINE [Concomitant]
     Active Substance: CABERGOLINE
     Dosage: YES
     Route: 048
     Dates: start: 2014

REACTIONS (1)
  - COVID-19 [Recovered/Resolved]

NARRATIVE: CASE EVENT DATE: 20210901
